FAERS Safety Report 9948499 (Version 1)
Quarter: 2014Q1

REPORT INFORMATION
  Report Type: Report from Study
  Country: US (occurrence: US)
  Receive Date: 20140303
  Receipt Date: 20140303
  Transmission Date: 20141002
  Serious: No
  Sender: FDA-Public Use
  Company Number: US-ABBVIE-13P-163-1057315-00

PATIENT
  Age: 64 Year
  Sex: Female

DRUGS (12)
  1. HUMIRA [Suspect]
     Indication: PSORIASIS
     Dates: start: 20121212, end: 20130205
  2. METFORMIN [Concomitant]
     Indication: DIABETES MELLITUS
  3. LISINOPRIL [Concomitant]
     Indication: HYPERTENSION
     Dosage: 10 MG DAILY
  4. SIMVASTATIN [Concomitant]
     Indication: BLOOD CHOLESTEROL INCREASED
     Dosage: 40 MG DAILY
  5. SYMBICORT [Concomitant]
     Indication: SINUS DISORDER
     Dosage: NONE LATELY
  6. NASONEX [Concomitant]
     Indication: SINUS DISORDER
     Dosage: NONE LATELY
  7. FOSAMAX [Concomitant]
     Indication: OSTEOPOROSIS
     Dosage: PRESCRIBED AS 1 PILL WEEKLY, BUT DOESN^T USE IT REGULARLY
  8. CENTRUM SILVER [Concomitant]
     Indication: VITAMIN SUPPLEMENTATION
  9. OCUVITE [Concomitant]
     Indication: VITAMIN SUPPLEMENTATION
  10. COQ 10 [Concomitant]
     Indication: VITAMIN SUPPLEMENTATION
  11. B COMPLEX [Concomitant]
     Indication: VITAMIN SUPPLEMENTATION
  12. CALCIUM WITH MAGNESIUM AND ZINC [Concomitant]
     Indication: VITAMIN SUPPLEMENTATION

REACTIONS (1)
  - Sinusitis [Recovering/Resolving]
